FAERS Safety Report 25470752 (Version 1)
Quarter: 2025Q2

REPORT INFORMATION
  Report Type: Spontaneous
  Country: US (occurrence: US)
  Receive Date: 20250624
  Receipt Date: 20250624
  Transmission Date: 20250717
  Serious: No
  Sender: UPSHER SMITH LABORATORIES
  Company Number: US-UPSHER-SMITH LABORATORIES, LLC-2023USL00165

PATIENT
  Sex: Male
  Weight: 95.238 kg

DRUGS (5)
  1. TESTOSTERONE [Suspect]
     Active Substance: TESTOSTERONE
     Indication: Blood testosterone decreased
     Route: 061
     Dates: start: 202206, end: 202301
  2. TESTOSTERONE [Suspect]
     Active Substance: TESTOSTERONE
     Route: 061
     Dates: start: 202206, end: 202212
  3. VALSARTAN [Concomitant]
     Active Substance: VALSARTAN
     Indication: Product used for unknown indication
     Route: 065
  4. OMEPRAZOLE [Concomitant]
     Active Substance: OMEPRAZOLE
     Indication: Product used for unknown indication
     Route: 065
  5. VENLAFAXINE [Concomitant]
     Active Substance: VENLAFAXINE HYDROCHLORIDE
     Indication: Product used for unknown indication
     Route: 065

REACTIONS (7)
  - Blood testosterone decreased [Recovering/Resolving]
  - Memory impairment [Recovering/Resolving]
  - Blood pressure abnormal [Recovering/Resolving]
  - Arthritis [Unknown]
  - Tinnitus [Unknown]
  - Dizziness [Unknown]
  - Product administered at inappropriate site [Unknown]

NARRATIVE: CASE EVENT DATE: 20220101
